FAERS Safety Report 22191421 (Version 1)
Quarter: 2023Q2

REPORT INFORMATION
  Report Type: Spontaneous
  Country: US (occurrence: None)
  Receive Date: 20230407
  Receipt Date: 20230407
  Transmission Date: 20230721
  Serious: Yes (Other)
  Sender: FDA-Public Use
  Company Number: None

PATIENT
  Age: 33 Year
  Sex: Female
  Weight: 74.25 kg

DRUGS (5)
  1. CLINDAMYCIN HYDROCHLORIDE [Suspect]
     Active Substance: CLINDAMYCIN HYDROCHLORIDE
     Indication: Folliculitis
     Dosage: OTHER QUANTITY : 30 CAPSULE(S);?FREQUENCY : 3 TIMES A DAY;?
     Route: 048
     Dates: start: 20230225, end: 20230307
  2. ESOMEPRAZOLE [Suspect]
     Active Substance: ESOMEPRAZOLE
  3. ZYRTEC [Concomitant]
     Active Substance: CETIRIZINE HYDROCHLORIDE
  4. FAMOTIDINE [Concomitant]
     Active Substance: FAMOTIDINE
  5. prenatal vitamin with zinc and dha [Concomitant]

REACTIONS (12)
  - Seborrhoea [None]
  - Skin burning sensation [None]
  - Rash [None]
  - Pruritus [None]
  - Pruritus [None]
  - Pruritus [None]
  - Dyspepsia [None]
  - Chest pain [None]
  - Pain in extremity [None]
  - Pain in extremity [None]
  - Insomnia [None]
  - Urticaria [None]

NARRATIVE: CASE EVENT DATE: 20230307
